FAERS Safety Report 13512728 (Version 3)
Quarter: 2017Q2

REPORT INFORMATION
  Report Type: Report from Study
  Country: US (occurrence: US)
  Receive Date: 20170504
  Receipt Date: 20170629
  Transmission Date: 20170830
  Serious: Yes (Hospitalization)
  Sender: FDA-Public Use
  Company Number: US-HORIZON-PRO-0011-2017

PATIENT
  Age: 14 Year
  Sex: Female
  Weight: 55.1 kg

DRUGS (3)
  1. POTASSIUM CHLORIDE. [Concomitant]
     Active Substance: POTASSIUM CHLORIDE
  2. PROCYSBI DELAYED-RELEASE [Suspect]
     Active Substance: CYSTEAMINE BITARTRATE
     Indication: CYSTINOSIS
     Dosage: 1350 MG BID
     Route: 048
     Dates: start: 20140328
  3. LISINOPRIL. [Concomitant]
     Active Substance: LISINOPRIL

REACTIONS (6)
  - Heart rate increased [Not Recovered/Not Resolved]
  - Rotavirus infection [Not Recovered/Not Resolved]
  - Transfusion [Unknown]
  - Renal failure [Not Recovered/Not Resolved]
  - Rhinovirus infection [Recovered/Resolved]
  - Drug dose omission [Unknown]

NARRATIVE: CASE EVENT DATE: 20170410
